FAERS Safety Report 15527227 (Version 1)
Quarter: 2018Q4

REPORT INFORMATION
  Report Type: Spontaneous
  Country: US (occurrence: US)
  Receive Date: 20181020
  Receipt Date: 20181020
  Transmission Date: 20190205
  Serious: No
  Sender: FDA-Public Use
  Company Number: US-JNJFOC-20181008351

PATIENT
  Age: 69 Year
  Sex: Female

DRUGS (13)
  1. HYDRALAZINE [Concomitant]
     Active Substance: HYDRALAZINE HYDROCHLORIDE
  2. PREDNISONE. [Concomitant]
     Active Substance: PREDNISONE
  3. TRIAMCINOLONE [Concomitant]
     Active Substance: TRIAMCINOLONE
  4. SULFAMETHOXAZOLE W/TRIMETHOPRIM [Concomitant]
     Active Substance: SULFAMETHOXAZOLE\TRIMETHOPRIM
  5. ACYCLOVIR. [Concomitant]
     Active Substance: ACYCLOVIR
  6. POTASSIUM CHLORIDE. [Concomitant]
     Active Substance: POTASSIUM CHLORIDE
  7. FUROSEMIDE. [Concomitant]
     Active Substance: FUROSEMIDE
  8. IMBRUVICA [Suspect]
     Active Substance: IBRUTINIB
     Indication: ACUTE MYELOID LEUKAEMIA
     Route: 048
     Dates: start: 20180719, end: 2018
  9. ATORVASTATIN [Concomitant]
     Active Substance: ATORVASTATIN
  10. FLUCONAZOLE. [Concomitant]
     Active Substance: FLUCONAZOLE
  11. METOPROLOL SUCCINATE. [Concomitant]
     Active Substance: METOPROLOL SUCCINATE
  12. DEXAMETHASONE. [Concomitant]
     Active Substance: DEXAMETHASONE
  13. OMEPRAZOLE. [Concomitant]
     Active Substance: OMEPRAZOLE

REACTIONS (4)
  - Headache [Unknown]
  - Haemorrhage subcutaneous [Unknown]
  - Product use in unapproved indication [Unknown]
  - Off label use [Unknown]

NARRATIVE: CASE EVENT DATE: 20180719
